FAERS Safety Report 9135432 (Version 1)
Quarter: 2013Q1

REPORT INFORMATION
  Report Type: Spontaneous
  Country: US (occurrence: US)
  Receive Date: 20130304
  Receipt Date: 20130304
  Transmission Date: 20140127
  Serious: Yes (Hospitalization)
  Sender: FDA-Public Use
  Company Number: PHEH2012US004995

PATIENT
  Sex: Female
  Weight: 65.76 kg

DRUGS (7)
  1. GLEEVEC [Suspect]
     Indication: CHRONIC MYELOID LEUKAEMIA
     Dosage: 400 MG, QD
     Route: 048
     Dates: start: 20110510
  2. GLEEVEC [Suspect]
     Dosage: 400 MG, DAILY
     Route: 048
     Dates: start: 20111229
  3. GEODON [Concomitant]
     Dosage: UNK UKN, UNK
  4. SAPHRIS [Concomitant]
     Dosage: UNK UKN, UNK
  5. GLIMEPIRIDE [Concomitant]
     Dosage: UNK UKN, UNK
  6. LISINOPRIL [Concomitant]
     Dosage: UNK UKN, UNK
  7. ALLOPURINOL [Concomitant]
     Dosage: UNK UKN, UNK

REACTIONS (12)
  - Splenic infection [Unknown]
  - Mental disorder [Unknown]
  - Blood triglycerides increased [Unknown]
  - Local swelling [Recovered/Resolved]
  - Dehydration [Unknown]
  - Weight increased [Unknown]
  - Hyperglycaemia [Unknown]
  - Blood glucose fluctuation [Unknown]
  - Fatigue [Unknown]
  - Vomiting [Unknown]
  - Confusional state [Unknown]
  - Nausea [Unknown]
